FAERS Safety Report 15004883 (Version 1)
Quarter: 2018Q2

REPORT INFORMATION
  Report Type: Spontaneous
  Country: US (occurrence: US)
  Receive Date: 20180613
  Receipt Date: 20180613
  Transmission Date: 20180711
  Serious: No
  Sender: FDA-Public Use
  Company Number: US-PFIZER INC-2018239295

PATIENT
  Age: 53 Year
  Sex: Male
  Weight: 95.25 kg

DRUGS (2)
  1. GABAPENTIN. [Suspect]
     Active Substance: GABAPENTIN
     Indication: NERVE INJURY
     Dosage: 2400 MG, UNK
  2. GABAPENTIN. [Suspect]
     Active Substance: GABAPENTIN
     Dosage: 3000 MG, DAILY
     Dates: start: 2014

REACTIONS (3)
  - Back pain [Not Recovered/Not Resolved]
  - Product use in unapproved indication [Unknown]
  - Condition aggravated [Not Recovered/Not Resolved]
